FAERS Safety Report 7493274-4 (Version None)
Quarter: 2011Q2

REPORT INFORMATION
  Report Type: 
  Country: None (occurrence: None)
  Receive Date: 20110520
  Receipt Date: 20110517
  Transmission Date: 20111010
  Serious: Yes (Other)
  Sender: FDA-Public Use
  Company Number: US-PFIZER INC-2011106915

PATIENT

DRUGS (3)
  1. ZOLOFT [Suspect]
  2. AMITRIPTYLINE HCL [Suspect]
  3. COPAXONE [Suspect]

REACTIONS (2)
  - MULTIPLE SCLEROSIS [None]
  - FIBROMYALGIA [None]
